FAERS Safety Report 13820596 (Version 1)
Quarter: 2017Q3

REPORT INFORMATION
  Report Type: Spontaneous
  Country: US (occurrence: US)
  Receive Date: 20170801
  Receipt Date: 20170801
  Transmission Date: 20171127
  Serious: No
  Sender: FDA-Public Use
  Company Number: US-TEVA-743626ACC

PATIENT
  Age: 39 Year
  Sex: Female
  Weight: 90.8 kg

DRUGS (1)
  1. EQ NICOTINE GUM COATED ICE MINT 2MG, 100CT (C2 NICORETTE) [Suspect]
     Active Substance: NICOTINE
     Indication: SMOKING CESSATION THERAPY
     Dates: start: 20170121, end: 20170123

REACTIONS (4)
  - Gastrointestinal disorder [Unknown]
  - Diarrhoea [Unknown]
  - Nausea [Unknown]
  - Vomiting [Unknown]

NARRATIVE: CASE EVENT DATE: 20170131
